FAERS Safety Report 22350871 (Version 1)
Quarter: 2023Q2

REPORT INFORMATION
  Report Type: Spontaneous
  Country: IT (occurrence: None)
  Receive Date: 20230522
  Receipt Date: 20230522
  Transmission Date: 20230722
  Serious: Yes (Other)
  Sender: FDA-Public Use
  Company Number: 2023A113968

PATIENT
  Age: 73 Year
  Sex: Male

DRUGS (7)
  1. TICAGRELOR [Suspect]
     Active Substance: TICAGRELOR
     Dosage: ROUTE OF ADMINISTRATION: ORAL
     Route: 048
     Dates: start: 20220101
  2. ASPIRIN [Suspect]
     Active Substance: ASPIRIN
     Dosage: ROUTE OF ADMINISTRATION: ORAL
     Route: 048
     Dates: start: 20220101
  3. SPIRIVA [Concomitant]
     Active Substance: TIOTROPIUM BROMIDE MONOHYDRATE
  4. EZETIMIBE [Concomitant]
     Active Substance: EZETIMIBE
  5. PANTOPRAZOLE SODIUM [Concomitant]
     Active Substance: PANTOPRAZOLE SODIUM
  6. ATORVASTATIN [Concomitant]
     Active Substance: ATORVASTATIN
  7. CARDURA [Concomitant]
     Active Substance: DOXAZOSIN MESYLATE

REACTIONS (2)
  - Anaemia [Recovering/Resolving]
  - Melaena [Recovering/Resolving]

NARRATIVE: CASE EVENT DATE: 20221230
